FAERS Safety Report 10188222 (Version 1)
Quarter: 2014Q2

REPORT INFORMATION
  Report Type: Spontaneous
  Country: GB (occurrence: None)
  Receive Date: 20140520
  Receipt Date: 20140520
  Transmission Date: 20141212
  Serious: Yes (Life-Threatening, Hospitalization)
  Sender: FDA-Public Use
  Company Number: AUR-APL-2014-05750

PATIENT
  Age: 67 Year
  Sex: Male
  Weight: 75.29 kg

DRUGS (8)
  1. TRAMADOL (TRAMADOL) [Suspect]
     Indication: BACK PAIN
     Dosage: 200 MG
     Route: 048
     Dates: start: 20140428, end: 20140430
  2. ASPIRIN (ACETYLSALICYLIC ACID) [Concomitant]
  3. BISOPROLOL (BISOPOROLOL) [Concomitant]
  4. CO-CODAMOL (PANADEINE CO) [Concomitant]
  5. RAMIPRIL (RAMIPRIL) [Concomitant]
  6. SIMVASTATIN (SIMVASTATIN) [Concomitant]
  7. SPIROLNOLACTONE (SPIRONOLACTONE) [Concomitant]
  8. WARFARIN (WARFARIN) [Concomitant]

REACTIONS (2)
  - Epistaxis [None]
  - International normalised ratio increased [None]
